FAERS Safety Report 24906626 (Version 2)
Quarter: 2025Q1

REPORT INFORMATION
  Report Type: Other
  Country: NO (occurrence: NO)
  Receive Date: 20250130
  Receipt Date: 20250214
  Transmission Date: 20250408
  Serious: Yes (Hospitalization)
  Sender: AIRGAS
  Company Number: NO-ALSI-2025000025

PATIENT
  Age: 48 Year
  Sex: Male

DRUGS (2)
  1. MEDICAL AIR COMPRESSED [Suspect]
     Active Substance: NITROGEN\OXYGEN
     Indication: Medication error
  2. OXYGEN [Suspect]
     Active Substance: OXYGEN

REACTIONS (1)
  - Decompression sickness [Recovered/Resolved]
